FAERS Safety Report 6718775-5 (Version None)
Quarter: 2010Q2

REPORT INFORMATION
  Report Type: 
  Country: None (occurrence: None)
  Receive Date: 20100511
  Receipt Date: 20100429
  Transmission Date: 20101027
  Serious: No
  Sender: FDA-Public Use
  Company Number: US-BIOGENIDEC-2010BI009789

PATIENT
  Sex: Male

DRUGS (2)
  1. TYSABRI [Suspect]
     Indication: MULTIPLE SCLEROSIS
     Route: 042
     Dates: start: 20050131, end: 20050101
  2. TYSABRI [Suspect]
     Route: 042
     Dates: start: 20090713, end: 20100203

REACTIONS (3)
  - BLOOD TEST ABNORMAL [None]
  - DRUG SPECIFIC ANTIBODY PRESENT [None]
  - MALAISE [None]
